FAERS Safety Report 17418050 (Version 1)
Quarter: 2020Q1

REPORT INFORMATION
  Report Type: Spontaneous
  Country: GB (occurrence: GB)
  Receive Date: 20200214
  Receipt Date: 20200214
  Transmission Date: 20200409
  Serious: Yes (Death, Hospitalization)
  Sender: FDA-Public Use
  Company Number: GB-TEVA-2020-GB-1185214

PATIENT
  Age: 93 Year
  Sex: Female

DRUGS (14)
  1. IMATINIB. [Suspect]
     Active Substance: IMATINIB MESYLATE
     Indication: GASTROINTESTINAL STROMAL TUMOUR
     Dosage: 400MG
     Route: 048
     Dates: end: 20190823
  2. DOMPERIDONE [Concomitant]
     Active Substance: DOMPERIDONE
     Dosage: THREE TIMES A DAY (10MG)
     Route: 048
  3. LOPERAMIDE [Concomitant]
     Active Substance: LOPERAMIDE
     Dosage: 2MG
     Route: 048
  4. LANSOPRAZOLE. [Concomitant]
     Active Substance: LANSOPRAZOLE
     Dosage: 60MG
     Route: 048
  5. ADCAL-D3 [Concomitant]
     Active Substance: CALCIUM CARBONATE\CHOLECALCIFEROL
     Dosage: 1 DOSAGE FORM
     Route: 048
  6. HYLO-FORTE [Concomitant]
     Active Substance: HYALURONATE SODIUM
     Dosage: 2 GTT
     Route: 047
  7. GAVISCON ADVANCE [Concomitant]
     Active Substance: POTASSIUM BICARBONATE\SODIUM ALGINATE
     Dosage: 40 ML DAILY;
     Route: 048
  8. MOVICOL [Concomitant]
     Active Substance: POLYETHYLENE GLYCOL 3350\POTASSIUM CHLORIDE\SODIUM BICARBONATE\SODIUM CHLORIDE
     Dosage: ONE A DAY; 13.8GRAMS
     Route: 048
  9. CODEINE [Concomitant]
     Active Substance: CODEINE
     Dosage: 30-60MG 4 HOURLY
     Route: 048
  10. SIMPLE LINCTUS [Concomitant]
     Active Substance: AMARANTH\CHLOROFORM\CITRIC ACID MONOHYDRATE\PIMPINELLA ANISUM WHOLE
     Dosage: AS NEEDED (15ML)
     Route: 048
  11. RAMIPRIL. [Concomitant]
     Active Substance: RAMIPRIL
     Dosage: 2.5 MILLIGRAM DAILY; MORNING
     Route: 048
  12. FUROSEMIDE. [Concomitant]
     Active Substance: FUROSEMIDE
     Dosage: 20 MILLIGRAM DAILY; MORNING
     Route: 048
  13. CITALOPRAM [Concomitant]
     Active Substance: CITALOPRAM HYDROBROMIDE
     Dosage: 10MG
     Route: 048
  14. LEVOTHYROXINE. [Concomitant]
     Active Substance: LEVOTHYROXINE
     Dosage: 100 MICROGRAM DAILY; MORNING
     Route: 048

REACTIONS (3)
  - Pneumonitis [Fatal]
  - Dyspnoea [Fatal]
  - Pneumonia [Fatal]

NARRATIVE: CASE EVENT DATE: 20190902
